FAERS Safety Report 8270924-6 (Version None)
Quarter: 2012Q2

REPORT INFORMATION
  Report Type: 
  Country: None (occurrence: None)
  Receive Date: 20120410
  Receipt Date: 20120403
  Transmission Date: 20120825
  Serious: Yes (Hospitalization, Other)
  Sender: FDA-Public Use
  Company Number: US-AMGEN-USASP2011039658

PATIENT
  Age: 45 Year
  Sex: Male
  Weight: 90.703 kg

DRUGS (4)
  1. ANTIHYPERTENSIVES [Concomitant]
     Dosage: UNK
     Route: 048
  2. ENBREL [Suspect]
     Indication: PSORIASIS
     Dosage: 50 MG, QWK
     Route: 058
     Dates: start: 20080417, end: 20110601
  3. TACLONEX [Concomitant]
     Indication: PSORIASIS
     Dosage: UNK UNK, QD
     Route: 061
     Dates: start: 20090101
  4. OLUX E [Concomitant]
     Indication: PSORIASIS
     Dosage: UNK UNK, QD
     Route: 061
     Dates: start: 20080601

REACTIONS (2)
  - PSORIASIS [None]
  - PANCREATIC CARCINOMA [None]
